FAERS Safety Report 20321314 (Version 1)
Quarter: 2022Q1

REPORT INFORMATION
  Report Type: Spontaneous
  Country: US (occurrence: None)
  Receive Date: 20220110
  Receipt Date: 20220110
  Transmission Date: 20220423
  Serious: Yes (Hospitalization)
  Sender: FDA-Public Use
  Company Number: None

PATIENT
  Sex: Female

DRUGS (1)
  1. REPATHA [Suspect]
     Active Substance: EVOLOCUMAB
     Indication: Type V hyperlipidaemia
     Dosage: OTHER FREQUENCY : 140MG/ML ;?INJECT 140 MG UNDER THE SKIN (SUBCUTANEOUS INJECTION) EVERY 14 DAYS?
     Route: 058
     Dates: start: 20200909

REACTIONS (3)
  - Headache [None]
  - Visual impairment [None]
  - Eye haemorrhage [None]
